FAERS Safety Report 8464425-X (Version None)
Quarter: 2012Q2

REPORT INFORMATION
  Report Type: 
  Country: None (occurrence: None)
  Receive Date: 20120626
  Receipt Date: 20120615
  Transmission Date: 20120825
  Serious: No
  Sender: FDA-Public Use
  Company Number: US-BIOGENIDEC-2012BI021652

PATIENT
  Sex: Female

DRUGS (3)
  1. AVONEX [Suspect]
     Indication: MULTIPLE SCLEROSIS
     Route: 030
     Dates: start: 19990101, end: 20050101
  2. AVONEX [Suspect]
     Route: 030
     Dates: start: 20120101
  3. AVONEX [Suspect]
     Route: 030
     Dates: start: 20050101, end: 20060101

REACTIONS (4)
  - MYALGIA [None]
  - HYPERHIDROSIS [None]
  - PYREXIA [None]
  - CHILLS [None]
